FAERS Safety Report 8136647 (Version 3)
Quarter: 2013Q2

REPORT INFORMATION
  Report Type: Report from Study
  Country: JP (occurrence: JP)
  Receive Date: 20110914
  Receipt Date: 20130528
  Transmission Date: 20140414
  Serious: Yes (Death, Other)
  Sender: FDA-Public Use
  Company Number: PHHY2011JP81253

PATIENT
  Age: 71 Year
  Sex: Female

DRUGS (12)
  1. AFINITOR [Suspect]
     Indication: METASTATIC RENAL CELL CARCINOMA
     Dosage: 10 MG, DAILY
     Route: 048
     Dates: start: 20110510, end: 20110620
  2. TEGRETOL [Concomitant]
     Indication: METASTATIC RENAL CELL CARCINOMA
     Dosage: 200 MG, UNK
     Route: 048
     Dates: start: 20110510
  3. NORVASC [Concomitant]
     Dosage: 5 MG, UNK
     Route: 048
     Dates: start: 20110510
  4. MOBIC [Concomitant]
     Indication: METASTATIC RENAL CELL CARCINOMA
     Dosage: 10 MG, UNK
     Route: 048
     Dates: start: 20110510
  5. LENDORMIN [Concomitant]
     Dosage: 0.25 MG, UNK
     Route: 048
     Dates: start: 20110510
  6. ADJUST-A [Concomitant]
     Dosage: 40 MG, UNK
     Route: 048
     Dates: start: 20110510
  7. MAGLAX [Concomitant]
     Dosage: 990 MG, UNK
     Route: 048
     Dates: start: 20110510
  8. OXYCONTIN [Concomitant]
     Indication: METASTATIC RENAL CELL CARCINOMA
     Dosage: 50 MG, UNK
     Route: 048
     Dates: start: 20110510
  9. PRIMPERAN [Concomitant]
     Indication: METASTATIC RENAL CELL CARCINOMA
     Dosage: 5 MG, UNK
     Route: 048
     Dates: start: 20110510
  10. PRIMPERAN [Concomitant]
     Dosage: 50 MEQ/KG, UNK
     Route: 048
  11. FENTANYL [Concomitant]
     Indication: METASTATIC RENAL CELL CARCINOMA
     Dosage: 2 MG, TID
     Route: 048
     Dates: start: 20110620
  12. RINDERON [Concomitant]
     Indication: METASTATIC RENAL CELL CARCINOMA
     Dosage: 4 MG, UNK
     Dates: start: 20110629

REACTIONS (3)
  - Blood lactate dehydrogenase increased [Fatal]
  - Neoplasm progression [Fatal]
  - Malignant neoplasm progression [Fatal]
